FAERS Safety Report 18664551 (Version 1)
Quarter: 2020Q4

REPORT INFORMATION
  Report Type: Spontaneous
  Country: IT (occurrence: IT)
  Receive Date: 20201225
  Receipt Date: 20201225
  Transmission Date: 20210114
  Serious: No
  Sender: FDA-Public Use
  Company Number: IT-LUPIN PHARMACEUTICALS INC.-2020-10721

PATIENT
  Age: 39 Year
  Sex: Female

DRUGS (10)
  1. ONDANSETRON [Suspect]
     Active Substance: ONDANSETRON
     Indication: VOMITING
     Dosage: UNK
     Route: 065
  2. LEVETIRACETAM. [Suspect]
     Active Substance: LEVETIRACETAM
     Indication: GENERALISED TONIC-CLONIC SEIZURE
     Dosage: UNK
     Route: 042
  3. LEVETIRACETAM. [Suspect]
     Active Substance: LEVETIRACETAM
     Indication: PETIT MAL EPILEPSY
  4. VALPROIC ACID. [Suspect]
     Active Substance: VALPROIC ACID
     Indication: PETIT MAL EPILEPSY
  5. DEXAMETHASONE. [Concomitant]
     Active Substance: DEXAMETHASONE
     Indication: INTRACRANIAL PRESSURE INCREASED
     Dosage: UNK
     Route: 042
  6. LACOSAMIDE. [Suspect]
     Active Substance: LACOSAMIDE
     Indication: PETIT MAL EPILEPSY
  7. METOCLOPRAMIDE. [Suspect]
     Active Substance: METOCLOPRAMIDE
     Indication: VOMITING
     Dosage: UNK
     Route: 065
  8. MANNITOL. [Concomitant]
     Active Substance: MANNITOL
     Indication: INTRACRANIAL PRESSURE INCREASED
     Dosage: UNK
     Route: 042
  9. LACOSAMIDE. [Suspect]
     Active Substance: LACOSAMIDE
     Indication: GENERALISED TONIC-CLONIC SEIZURE
     Dosage: UNK
     Route: 042
  10. VALPROIC ACID. [Suspect]
     Active Substance: VALPROIC ACID
     Indication: GENERALISED TONIC-CLONIC SEIZURE
     Dosage: UNK
     Route: 042

REACTIONS (2)
  - Therapeutic product effect incomplete [Unknown]
  - Drug ineffective [Unknown]
